FAERS Safety Report 23811386 (Version 2)
Quarter: 2024Q2

REPORT INFORMATION
  Report Type: Spontaneous
  Country: AU (occurrence: AU)
  Receive Date: 20240503
  Receipt Date: 20240529
  Transmission Date: 20240716
  Serious: Yes (Hospitalization, Other)
  Sender: FDA-Public Use
  Company Number: AU-BIOGEN-2024BI01262612

PATIENT
  Age: 46 Year
  Sex: Female

DRUGS (4)
  1. TYSABRI [Suspect]
     Active Substance: NATALIZUMAB
     Indication: Product used for unknown indication
     Route: 050
     Dates: start: 2015, end: 2018
  2. GILENYA [Suspect]
     Active Substance: FINGOLIMOD HYDROCHLORIDE
     Indication: Product used for unknown indication
     Route: 050
     Dates: start: 2014, end: 2014
  3. KESIMPTA [Suspect]
     Active Substance: OFATUMUMAB
     Indication: Multiple sclerosis
     Route: 050
     Dates: start: 202312
  4. OCRELIZUMAB [Suspect]
     Active Substance: OCRELIZUMAB
     Indication: Product used for unknown indication
     Route: 050
     Dates: start: 201803

REACTIONS (13)
  - Ataxia [Unknown]
  - Balance disorder [Unknown]
  - COVID-19 [Unknown]
  - Drug intolerance [Unknown]
  - Dyspnoea [Unknown]
  - Fatigue [Unknown]
  - Immunoglobulins decreased [Unknown]
  - Injection site discomfort [Unknown]
  - Malaise [Unknown]
  - Multiple sclerosis relapse [Unknown]
  - Myalgia [Unknown]
  - Pyrexia [Unknown]
  - JC polyomavirus test positive [Unknown]

NARRATIVE: CASE EVENT DATE: 20180101
